FAERS Safety Report 6129922-0 (Version None)
Quarter: 2009Q1

REPORT INFORMATION
  Report Type: 
  Country: None (occurrence: None)
  Receive Date: 20090324
  Receipt Date: 20090309
  Transmission Date: 20090719
  Serious: Yes (Other)
  Sender: FDA-Public Use
  Company Number: JAUSA18808

PATIENT
  Age: 35 Year
  Sex: Female

DRUGS (3)
  1. NIZORAL [Suspect]
     Indication: VULVOVAGINAL CANDIDIASIS
     Route: 048
  2. ERYTHROMYCIN [Concomitant]
     Indication: BRONCHITIS
     Route: 048
     Dates: start: 19870201, end: 19870210
  3. TYLENOL W/ CODEINE [Concomitant]
     Indication: BRONCHITIS
     Route: 048
     Dates: start: 19870201, end: 19870210

REACTIONS (2)
  - ABORTION SPONTANEOUS [None]
  - DRUG EXPOSURE DURING PREGNANCY [None]
